FAERS Safety Report 17671117 (Version 1)
Quarter: 2020Q2

REPORT INFORMATION
  Report Type: Spontaneous
  Country: US (occurrence: US)
  Receive Date: 20200415
  Receipt Date: 20200415
  Transmission Date: 20200713
  Serious: No
  Sender: FDA-Public Use
  Company Number: US-009507513-2004USA003511

PATIENT
  Age: 26 Year
  Sex: Female
  Weight: 80.28 kg

DRUGS (1)
  1. NEXPLANON [Suspect]
     Active Substance: ETONOGESTREL
     Dosage: 1 ROD SUBDERMALLY EVERY 3 YEARS, LEFT ARM
     Dates: start: 20170421

REACTIONS (2)
  - Complication associated with device [Not Recovered/Not Resolved]
  - Device placement issue [Unknown]

NARRATIVE: CASE EVENT DATE: 20170421
